FAERS Safety Report 7245861-6 (Version None)
Quarter: 2011Q1

REPORT INFORMATION
  Report Type: 
  Country: None (occurrence: None)
  Receive Date: 20110126
  Receipt Date: 20110120
  Transmission Date: 20110831
  Serious: Yes (Hospitalization, Other)
  Sender: FDA-Public Use
  Company Number: BE-MERCK-1011BEL00010

PATIENT
  Age: 59 Year
  Sex: Male

DRUGS (12)
  1. FOSAMAX [Suspect]
     Indication: OSTEOPOROSIS
     Route: 048
  2. DESLORATADINE [Concomitant]
     Route: 048
  3. LORMETAZEPAM [Concomitant]
     Route: 048
  4. ACETAMINOPHEN [Concomitant]
     Route: 048
  5. SAW PALMETTO [Concomitant]
     Indication: BENIGN PROSTATIC HYPERPLASIA
     Route: 048
  6. TERAZOSIN HYDROCHLORIDE [Concomitant]
     Route: 048
  7. AMLODIPINE [Concomitant]
     Indication: HYPERTENSION
     Route: 048
  8. LISINOPRIL [Concomitant]
     Indication: HYPERTENSION
     Route: 048
  9. FOSAMAX [Suspect]
     Indication: SPINAL COMPRESSION FRACTURE
     Route: 048
  10. TRIAMCINOLONE [Concomitant]
     Route: 051
     Dates: start: 19830101
  11. ALLOPURINOL [Concomitant]
     Route: 048
  12. PAMIDRONATE DISODIUM [Suspect]
     Route: 042

REACTIONS (3)
  - CONJUNCTIVITIS ALLERGIC [None]
  - TOXIC OPTIC NEUROPATHY [None]
  - IRIDOCYCLITIS [None]
